FAERS Safety Report 4922495-7 (Version None)
Quarter: 2006Q1

REPORT INFORMATION
  Report Type: 
  Country: None (occurrence: None)
  Receive Date: 20060224
  Receipt Date: 20060213
  Transmission Date: 20060701
  Serious: Yes (Other)
  Sender: FDA-Public Use
  Company Number: AU-ROCHE-435985

PATIENT
  Age: 75 Year
  Sex: Female

DRUGS (3)
  1. CEFTRIAXONE SODIUM [Suspect]
     Indication: DRUG USE FOR UNKNOWN INDICATION
     Route: 042
     Dates: start: 20050303, end: 20050303
  2. OMEPRAZOLE [Concomitant]
     Route: 048
  3. AMOXYCILLIN SODIUM [Concomitant]
     Dates: start: 20050301, end: 20050303

REACTIONS (6)
  - ANAPHYLACTIC REACTION [None]
  - CIRCULATORY COLLAPSE [None]
  - HYPOTENSION [None]
  - PRURITUS GENERALISED [None]
  - RASH [None]
  - URTICARIA [None]
